FAERS Safety Report 23432508 (Version 1)
Quarter: 2024Q1

REPORT INFORMATION
  Report Type: Spontaneous
  Country: CN (occurrence: CN)
  Receive Date: 20240123
  Receipt Date: 20240123
  Transmission Date: 20240410
  Serious: Yes (Other)
  Sender: FDA-Public Use
  Company Number: None

PATIENT
  Age: 40 Year
  Sex: Female
  Weight: 55 kg

DRUGS (7)
  1. CYCLOPHOSPHAMIDE [Suspect]
     Active Substance: CYCLOPHOSPHAMIDE
     Indication: Breast cancer female
     Dosage: 0.9 G, ONE TIME IN ONE DAY, D1, DILUTED WITH 0.9% SODIUM CHLORIDE
     Route: 041
     Dates: start: 20231221, end: 20231221
  2. SODIUM CHLORIDE [Suspect]
     Active Substance: SODIUM CHLORIDE
     Indication: Medication dilution
     Dosage: (0.9%, INJECTION), D1, USED TO DILUTE WITH 0.9 G OF CYCLOPHOSPHAMIDE
     Route: 041
     Dates: start: 20231221, end: 20231221
  3. SODIUM CHLORIDE [Suspect]
     Active Substance: SODIUM CHLORIDE
     Dosage: 100 ML, ONE TIME IN ONE DAY, D1, COMBINED WITH 50 ML OF STERILE WATER FOR INJECTION USED TO DILUTE W
     Route: 041
     Dates: start: 20231221, end: 20231221
  4. DEXTROSE [Suspect]
     Active Substance: DEXTROSE\DEXTROSE MONOHYDRATE
     Indication: Medication dilution
     Dosage: (5%), 600 ML, ONE TIME IN ONE DAY, D2, USED TO DILUTE WITH 240 MG OF PACLITAXEL LIPOSOME
     Route: 041
     Dates: start: 20231222, end: 20231222
  5. WATER FOR INJECTION [Suspect]
     Active Substance: WATER
     Indication: Medication dilution
     Dosage: 50 ML, ONE TIME IN ONE DAY, D1, COMBINED WITH 100 ML OF SODIUM CHLORIDE USED TO DILUTE WITH 110 MG O
     Route: 041
     Dates: start: 20231221, end: 20231221
  6. EPIRUBICIN HYDROCHLORIDE [Suspect]
     Active Substance: EPIRUBICIN HYDROCHLORIDE
     Indication: Breast cancer female
     Dosage: 110 MG, ONE TIME IN ONE DAY, D1, USED TO DILUTE WITH 50 ML OF STERILE WATER FOR INJECTION COMBINED W
     Route: 041
     Dates: start: 20231221, end: 20231221
  7. PACLITAXEL [Suspect]
     Active Substance: PACLITAXEL
     Indication: Breast cancer female
     Dosage: 240 MG, D2, ONE TIME IN ONE DAY, USED TO DILUTE WITH 5% 600 ML OF GLUCOSE
     Route: 041
     Dates: start: 20231222, end: 20231222

REACTIONS (1)
  - Liver injury [Unknown]

NARRATIVE: CASE EVENT DATE: 20240110
